FAERS Safety Report 25849992 (Version 1)
Quarter: 2025Q3

REPORT INFORMATION
  Report Type: Spontaneous
  Country: EU (occurrence: EU)
  Receive Date: 20250926
  Receipt Date: 20250926
  Transmission Date: 20251020
  Serious: Yes (Hospitalization, Other)
  Sender: AUROBINDO
  Company Number: EU-AFSSAPS-MP2025001237

PATIENT
  Age: 66 Year
  Sex: Male
  Weight: 69.5 kg

DRUGS (4)
  1. AZITHROMYCIN [Suspect]
     Active Substance: AZITHROMYCIN
     Indication: Mycobacterial infection
     Dosage: 500 MILLIGRAM, ONCE A DAY
     Route: 065
     Dates: start: 20250407, end: 20250822
  2. AZITHROMYCIN [Suspect]
     Active Substance: AZITHROMYCIN
     Dosage: 250 MILLIGRAM, ONCE A DAY
     Route: 065
     Dates: start: 20250822, end: 20250901
  3. ETHAMBUTOL HYDROCHLORIDE [Concomitant]
     Active Substance: ETHAMBUTOL HYDROCHLORIDE
     Indication: Mycobacterial infection
     Dosage: 1000 MILLIGRAM, ONCE A DAY
     Route: 065
     Dates: start: 20250407
  4. RIFABUTIN [Concomitant]
     Active Substance: RIFABUTIN
     Indication: Mycobacterial infection
     Dosage: AT 300 MG/DAY UNTIL ALLOGRAFT
     Route: 065
     Dates: start: 20250407

REACTIONS (3)
  - Deafness bilateral [Not Recovered/Not Resolved]
  - Tinnitus [Not Recovered/Not Resolved]
  - Antibiotic level above therapeutic [Not Recovered/Not Resolved]

NARRATIVE: CASE EVENT DATE: 20250401
